FAERS Safety Report 7384219-6 (Version None)
Quarter: 2011Q1

REPORT INFORMATION
  Report Type: 
  Country: None (occurrence: None)
  Receive Date: 20110330
  Receipt Date: 20110317
  Transmission Date: 20110831
  Serious: Yes (Hospitalization)
  Sender: FDA-Public Use
  Company Number: JP-WATSON-2011-03917

PATIENT
  Age: 69 Year
  Sex: Male

DRUGS (1)
  1. HYDROCORTISONE ACETATE [Suspect]
     Indication: THYROTOXIC CRISIS
     Dosage: UNK
     Route: 065

REACTIONS (1)
  - VENTRICULAR FIBRILLATION [None]
